FAERS Safety Report 12090927 (Version 1)
Quarter: 2016Q1

REPORT INFORMATION
  Report Type: Report from Study
  Country: US (occurrence: US)
  Receive Date: 20160218
  Receipt Date: 20160218
  Transmission Date: 20160526
  Serious: Yes (Hospitalization)
  Sender: FDA-Public Use
  Company Number: US-ACTELION-A-NJ2015-125441

PATIENT
  Age: 74 Year
  Sex: Female

DRUGS (2)
  1. ADCIRCA [Concomitant]
     Active Substance: TADALAFIL
  2. VELETRI [Suspect]
     Active Substance: EPOPROSTENOL
     Indication: PULMONARY ARTERIAL HYPERTENSION
     Dosage: 39 NG/KG, PER MIN
     Route: 042
     Dates: start: 20141125

REACTIONS (13)
  - Feeling abnormal [Unknown]
  - Catheter site discharge [Unknown]
  - Pain in jaw [Unknown]
  - Rash [Unknown]
  - Scab [Unknown]
  - Infection [Unknown]
  - Catheter site scab [Unknown]
  - Burning sensation [Unknown]
  - Nasal congestion [Unknown]
  - Fatigue [Unknown]
  - Central venous catheterisation [Unknown]
  - Device related infection [Unknown]
  - Catheter management [Unknown]
